FAERS Safety Report 9298441 (Version 1)
Quarter: 2013Q2

REPORT INFORMATION
  Report Type: Spontaneous
  Country: FR (occurrence: FR)
  Receive Date: 20130520
  Receipt Date: 20130520
  Transmission Date: 20140414
  Serious: Yes (Death, Life-Threatening, Hospitalization, Other)
  Sender: FDA-Public Use
  Company Number: FR-ASTRAZENECA-2013SE34130

PATIENT
  Age: 70 Year
  Sex: Female

DRUGS (3)
  1. BRILIQUE [Suspect]
     Route: 048
     Dates: start: 20120729, end: 20120729
  2. KARDEGIC [Suspect]
     Route: 048
     Dates: end: 20120729
  3. ARIXTRA [Suspect]
     Route: 058
     Dates: start: 20120721, end: 20120729

REACTIONS (5)
  - Subdural haematoma [Fatal]
  - Subarachnoid haemorrhage [Fatal]
  - Diabetes insipidus [Unknown]
  - Atrial fibrillation [Unknown]
  - Cardiac arrest [Fatal]
